FAERS Safety Report 9747756 (Version 1)
Quarter: 2013Q4

REPORT INFORMATION
  Report Type: Spontaneous
  Country: None (occurrence: IT)
  Receive Date: 20131212
  Receipt Date: 20131212
  Transmission Date: 20140711
  Serious: Yes (Other)
  Sender: FDA-Public Use
  Company Number: IT-ACCORD-020657

PATIENT
  Age: 71 Year
  Sex: Female
  Weight: 75 kg

DRUGS (2)
  1. PACLITAXEL [Suspect]
     Indication: BREAST ANGIOSARCOMA
     Route: 042
     Dates: start: 20130926, end: 20130926
  2. RANITIDINE [Concomitant]

REACTIONS (3)
  - Hypersensitivity [Recovering/Resolving]
  - Laryngeal oedema [Recovering/Resolving]
  - Rash [Recovering/Resolving]
